FAERS Safety Report 12994680 (Version 2)
Quarter: 2016Q4

REPORT INFORMATION
  Report Type: Report from Study
  Country: US (occurrence: US)
  Receive Date: 20161202
  Receipt Date: 20161215
  Transmission Date: 20170207
  Serious: Yes (Death, Other)
  Sender: FDA-Public Use
  Company Number: US-009507513-1611USA013625

PATIENT
  Sex: Female

DRUGS (1)
  1. KEYTRUDA [Suspect]
     Active Substance: PEMBROLIZUMAB
     Indication: AESTHESIONEUROBLASTOMA
     Dosage: UNK
     Dates: end: 201606

REACTIONS (2)
  - Malignant neoplasm progression [Fatal]
  - Off label use [Unknown]
